FAERS Safety Report 7592237-8 (Version None)
Quarter: 2011Q3

REPORT INFORMATION
  Report Type: 
  Country: None (occurrence: None)
  Receive Date: 20110706
  Receipt Date: 20110623
  Transmission Date: 20111222
  Serious: Yes (Hospitalization, Other)
  Sender: FDA-Public Use
  Company Number: US-ELI_LILLY_AND_COMPANY-US201101000417

PATIENT
  Sex: Female
  Weight: 61.68 kg

DRUGS (8)
  1. TRIAMTERENE [Concomitant]
     Route: 065
  2. VITAMIN D [Concomitant]
     Dosage: UNK, UNKNOWN
     Route: 065
     Dates: start: 20100301
  3. FORTEO [Suspect]
     Indication: OSTEOPOROSIS
     Dosage: 20 UG, DAILY (1/D)
     Route: 065
     Dates: start: 20100301, end: 20101205
  4. GLUCOSAMINE [Concomitant]
  5. LISINOPRIL [Concomitant]
     Dosage: 10 MG, DAILY (1/D)
     Route: 065
  6. CALCIUM CARBONATE [Concomitant]
     Route: 065
  7. FORTEO [Suspect]
     Dosage: 20 UG, QOD
     Dates: start: 20101222
  8. ARIMIDEX [Concomitant]
     Dosage: UNK, UNKNOWN
     Route: 065

REACTIONS (21)
  - GASTRITIS [None]
  - NONSPECIFIC REACTION [None]
  - VOMITING [None]
  - OSTEOARTHRITIS [None]
  - ARTHRALGIA [None]
  - URINARY TRACT INFECTION [None]
  - BLOOD POTASSIUM DECREASED [None]
  - VITAMIN D ABNORMAL [None]
  - DIARRHOEA [None]
  - FEELING ABNORMAL [None]
  - OEDEMA PERIPHERAL [None]
  - HYPERTENSION [None]
  - APHAGIA [None]
  - GAIT DISTURBANCE [None]
  - HYPERCALCAEMIA [None]
  - DRUG DOSE OMISSION [None]
  - INAPPROPRIATE SCHEDULE OF DRUG ADMINISTRATION [None]
  - HYPERVITAMINOSIS [None]
  - ASTHENIA [None]
  - ERUCTATION [None]
  - MALAISE [None]
